FAERS Safety Report 16714301 (Version 1)
Quarter: 2019Q3

REPORT INFORMATION
  Report Type: Spontaneous
  Country: GB (occurrence: GB)
  Receive Date: 20190819
  Receipt Date: 20190819
  Transmission Date: 20191004
  Serious: Yes (Life-Threatening, Hospitalization, Congenital Anomaly, Other)
  Sender: FDA-Public Use
  Company Number: GB-AUROBINDO-AUR-APL-2019-053498

PATIENT

DRUGS (1)
  1. FLUOXETINE [Suspect]
     Active Substance: FLUOXETINE HYDROCHLORIDE
     Indication: PRODUCT USED FOR UNKNOWN INDICATION
     Dosage: 20 MILLIGRAM, DAILY
     Route: 064

REACTIONS (7)
  - Hypoventilation [Recovering/Resolving]
  - PCO2 increased [Recovering/Resolving]
  - Congenital central hypoventilation syndrome [Recovering/Resolving]
  - Cyanosis [Recovering/Resolving]
  - Apnoea [Recovering/Resolving]
  - Hypoxia [Recovering/Resolving]
  - Foetal exposure during pregnancy [Recovering/Resolving]
